FAERS Safety Report 9761589 (Version 1)
Quarter: 2013Q4

REPORT INFORMATION
  Report Type: Spontaneous
  Country: US (occurrence: US)
  Receive Date: 20131216
  Receipt Date: 20131216
  Transmission Date: 20140711
  Serious: Yes (Hospitalization, Other)
  Sender: FDA-Public Use
  Company Number: US-B.I. PHARMACEUTICALS,INC./RIDGEFIELD-2013-BI-41610BP

PATIENT
  Age: 71 Year
  Sex: Male
  Weight: 126 kg

DRUGS (6)
  1. AGGRENOX [Suspect]
     Indication: TRANSIENT ISCHAEMIC ATTACK
     Dosage: STRENGTH: 25 MG / 200 MG; DAILY DOSE: 50 MG / 400 MG
     Route: 048
     Dates: start: 20100927, end: 20120915
  2. AGGRENOX [Suspect]
     Dosage: STRENGTH: 25 MG / 200 MG; DAILY DOSE: 50 MG / 400 MG
     Route: 048
     Dates: start: 20121020
  3. ATORVASTATIN [Concomitant]
     Indication: BLOOD CHOLESTEROL INCREASED
     Dosage: 80 MG
     Route: 048
  4. CLOR-KON [Concomitant]
     Dosage: 20 MEQ
     Route: 048
  5. LASIX [Concomitant]
     Indication: FLUID RETENTION
     Dosage: 40 MG
     Route: 048
  6. METOPROLOL [Concomitant]
     Dosage: 25 MG
     Route: 048

REACTIONS (4)
  - Arterial occlusive disease [Recovered/Resolved]
  - Transient ischaemic attack [Recovered/Resolved]
  - Aortic aneurysm [Recovered/Resolved]
  - Vision blurred [Recovered/Resolved]
